FAERS Safety Report 9514680 (Version 2)
Quarter: 2014Q1

REPORT INFORMATION
  Report Type: Spontaneous
  Country: US (occurrence: None)
  Receive Date: 20130305
  Receipt Date: 20140306
  Transmission Date: 20141002
  Serious: Yes (Hospitalization)
  Sender: FDA-Public Use
  Company Number: 163-21880-12123104

PATIENT
  Age: 58 Year
  Sex: Male
  Weight: 68.4 kg

DRUGS (3)
  1. REVLIMID [Suspect]
     Indication: PLASMA CELL MYELOMA
     Dosage: 5 MG,  1 IN 1 D,  PO
     Route: 048
     Dates: start: 201206
  2. CLINDAMYCIN HCL (CLINDAMYCIN HYDROCHLORIDE) [Concomitant]
  3. VANCOMYCIN HCL (VANCOMYCIN HYDROCHLORIDE) [Concomitant]

REACTIONS (1)
  - Platelet count decreased [None]
